FAERS Safety Report 19481542 (Version 3)
Quarter: 2021Q3

REPORT INFORMATION
  Report Type: Spontaneous
  Country: CA (occurrence: CA)
  Receive Date: 20210701
  Receipt Date: 20210927
  Transmission Date: 20211014
  Serious: Yes (Other)
  Sender: FDA-Public Use
  Company Number: CA-CELLTRION INC.-2019CA021593

PATIENT

DRUGS (26)
  1. AURO?ATORVASTATIN [Concomitant]
     Dosage: 20 MG, 1X/DAY
     Route: 065
  2. MINT DULOXETINE [Concomitant]
     Dosage: 60 MG, 1X/DAY
     Route: 065
  3. REFRESH PLUS [Concomitant]
     Active Substance: CARBOXYMETHYLCELLULOSE SODIUM
     Dosage: 1 DROP IN EACH EYE 3 TO 4 TIMES A DAY
     Route: 065
  4. TEVA NABILONE [Concomitant]
     Dosage: 1 MG, 1X/DAY, FOR 7 DAYS THEN INCREASE IF TOLERATED
  5. INFLECTRA [Suspect]
     Active Substance: INFLIXIMAB-DYYB
     Dosage: 5 MG/KG EVERY 6 WEEKS
     Route: 042
     Dates: start: 20200130
  6. TEVA?5?ASA [Concomitant]
     Dosage: 400 MG (4 TABLETS), 3X/DAY
     Route: 065
  7. INFLECTRA [Suspect]
     Active Substance: INFLIXIMAB-DYYB
     Dosage: 5 MG/KG, EVERY 6 WEEKS
     Route: 042
     Dates: start: 20210512
  8. INFLECTRA [Suspect]
     Active Substance: INFLIXIMAB-DYYB
     Dosage: 5 MG/KG, EVERY 6 WEEKS
     Route: 042
     Dates: start: 20210915
  9. JAMP FOLIC ACID [Concomitant]
     Dosage: 1 MG, 1X/DAY
     Route: 065
  10. SUPEUDOL [Concomitant]
     Active Substance: OXYCODONE HYDROCHLORIDE
     Dosage: 10 MG, EVERY 4 OR 6 HOURS AS NEEDED
     Route: 065
  11. TEVA NABILONE [Concomitant]
     Dosage: 0.5 MG, 1X/DAY FOR 7 DAYS
  12. INFLECTRA [Suspect]
     Active Substance: INFLIXIMAB-DYYB
     Dosage: 5 MG/KG EVERY 6 WEEKS
     Route: 042
     Dates: start: 20191209
  13. JAMP?PANTOPRAZOLE [Concomitant]
     Dosage: 40 MG, 1X/DAY
     Route: 065
  14. INFLECTRA [Suspect]
     Active Substance: INFLIXIMAB-DYYB
     Dosage: 5 MG/KG EVERY 6 WEEKS
     Route: 042
     Dates: start: 20200316
  15. MINT ZOPICLONE [Concomitant]
     Active Substance: ZOPICLONE
     Dosage: 5 MG, 1X/DAY
     Route: 065
  16. INFLECTRA [Suspect]
     Active Substance: INFLIXIMAB-DYYB
     Dosage: 5 MG/KG EVERY 6 WEEKS
     Route: 042
     Dates: start: 20200615
  17. INFLECTRA [Suspect]
     Active Substance: INFLIXIMAB-DYYB
     Dosage: 5 MG/KG, EVERY 6 WEEKS
     Route: 042
     Dates: start: 20210804
  18. JAMP FERROUS SULFATE [Concomitant]
     Active Substance: FERROUS SULFATE
     Dosage: 300 MG, 3X/DAY
     Route: 065
  19. MESTINON [Concomitant]
     Active Substance: PYRIDOSTIGMINE BROMIDE
     Dosage: 60 MG, 3X/DAY
     Route: 065
  20. MINT PREGABALIN [Concomitant]
     Dosage: 50 MG, 2X/DAY (2 CAPS)
     Route: 065
  21. SENNOSIDES. [Concomitant]
     Active Substance: SENNOSIDES
     Dosage: 8.6 MG, 2X/DAY (2 TABS)
     Route: 065
  22. TEVA?5?ASA [Concomitant]
     Dosage: 4 DF, 3X/DAY
     Route: 065
  23. INFLECTRA [Suspect]
     Active Substance: INFLIXIMAB-DYYB
     Indication: CROHN^S DISEASE
     Dosage: 5 MG/KG EVERY 6 WEEKS
     Route: 042
     Dates: start: 20190516
  24. APO OXYCODONE [Concomitant]
     Active Substance: OXYCODONE HYDROCHLORIDE
     Dosage: 15 MG, 2X/DAY
     Route: 065
  25. APO TAMSULOSIN [Concomitant]
     Active Substance: TAMSULOSIN HYDROCHLORIDE
     Dosage: 0.4 MG, 1X/DAY
     Route: 065
  26. PMS LACTULOSE [Concomitant]
     Dosage: 667 MG/ML TAKE 30 ML, 3X/DAY EVERY 2 OR 3 DAYS PRN
     Route: 048

REACTIONS (7)
  - Influenza [Unknown]
  - Limb discomfort [Unknown]
  - Nasopharyngitis [Recovering/Resolving]
  - Heart rate decreased [Unknown]
  - Pneumonia [Recovering/Resolving]
  - Off label use [Unknown]
  - Blood pressure fluctuation [Unknown]

NARRATIVE: CASE EVENT DATE: 20190516
